FAERS Safety Report 4647656-6 (Version None)
Quarter: 2005Q2

REPORT INFORMATION
  Report Type: 
  Country: None (occurrence: None)
  Receive Date: 20050426
  Receipt Date: 20050414
  Transmission Date: 20051028
  Serious: No
  Sender: FDA-Public Use
  Company Number: 2004-121200-NL

PATIENT
  Sex: Female

DRUGS (1)
  1. NUVARING [Suspect]
     Dosage: VAGINAL
     Route: 067

REACTIONS (5)
  - CONVULSION [None]
  - INJURY [None]
  - NERVOUSNESS [None]
  - ORAL INTAKE REDUCED [None]
  - SYNCOPE [None]
